FAERS Safety Report 8604331-0 (Version None)
Quarter: 2012Q3

REPORT INFORMATION
  Report Type: 
  Country: None (occurrence: None)
  Receive Date: 20120820
  Receipt Date: 20120809
  Transmission Date: 20120928
  Serious: Yes (Other)
  Sender: FDA-Public Use
  Company Number: CA-JNJFOC-20120804823

PATIENT
  Sex: Female
  Weight: 66.8 kg

DRUGS (2)
  1. REMICADE [Suspect]
     Route: 042
     Dates: start: 20111101
  2. REMICADE [Suspect]
     Indication: PSORIASIS
     Route: 042
     Dates: start: 20120613

REACTIONS (4)
  - PSORIATIC ARTHROPATHY [None]
  - DYSURIA [None]
  - PSORIASIS [None]
  - POLLAKIURIA [None]
